FAERS Safety Report 9964619 (Version 1)
Quarter: 2014Q1

REPORT INFORMATION
  Report Type: Spontaneous
  Country: US (occurrence: US)
  Receive Date: 20140305
  Receipt Date: 20140305
  Transmission Date: 20141002
  Serious: No
  Sender: FDA-Public Use
  Company Number: US-AMGEN-USASP2013089101

PATIENT
  Age: 46 Year
  Sex: Female

DRUGS (7)
  1. ENBREL [Suspect]
     Indication: PSORIATIC ARTHROPATHY
     Dosage: 50 MG, QWK
     Route: 058
     Dates: start: 20121001, end: 20131211
  2. SEREVENT [Concomitant]
     Dosage: 50 MCG, UNK
  3. LEFLUNOMIDE [Concomitant]
     Dosage: UNK
  4. PERCOCET                           /00867901/ [Concomitant]
     Dosage: UNK
  5. SKELAXIN                           /00611501/ [Concomitant]
     Dosage: UNK
  6. ZYRTEC [Concomitant]
     Dosage: UNK
  7. ALBUTEROL                          /00139501/ [Concomitant]
     Dosage: UNK

REACTIONS (1)
  - Treatment failure [Not Recovered/Not Resolved]
